FAERS Safety Report 5589322-9 (Version None)
Quarter: 2008Q1

REPORT INFORMATION
  Report Type: 
  Country: None (occurrence: None)
  Receive Date: 20080109
  Receipt Date: 20071221
  Transmission Date: 20080703
  Serious: Yes (Other)
  Sender: FDA-Public Use
  Company Number: ENT 2006-0101

PATIENT
  Age: 65 Year
  Sex: Male

DRUGS (4)
  1. ENTACAPONE [Suspect]
     Indication: PARKINSON'S DISEASE
     Dosage: 800 MG (200 MG, 4 IN 1 D)
     Route: 048
     Dates: start: 20050101, end: 20051201
  2. SINEMET [Concomitant]
  3. SELEGILINE HCL [Concomitant]
  4. ROPINIROLE HCL [Concomitant]

REACTIONS (6)
  - DENTAL CARIES [None]
  - DRY MOUTH [None]
  - GINGIVAL RECESSION [None]
  - MINERAL DEFICIENCY [None]
  - PROSTATE CANCER [None]
  - TOOTH LOSS [None]
